FAERS Safety Report 7724734-6 (Version None)
Quarter: 2011Q3

REPORT INFORMATION
  Report Type: 
  Country: None (occurrence: None)
  Receive Date: 20110901
  Receipt Date: 20110826
  Transmission Date: 20111222
  Serious: Yes (Other)
  Sender: FDA-Public Use
  Company Number: FR-VALEANT-2011VX002556

PATIENT
  Age: 24 Year
  Sex: Male

DRUGS (9)
  1. CEFTRIAXONE MYLAN [Suspect]
     Indication: MYELITIS
     Route: 042
     Dates: start: 20110609, end: 20110601
  2. NEXIUM [Suspect]
     Indication: PROPHYLAXIS AGAINST GASTROINTESTINAL ULCER
     Route: 048
     Dates: start: 20110610, end: 20110704
  3. CEFTRIAXONE MYLAN [Suspect]
     Route: 042
     Dates: start: 20110701, end: 20110704
  4. ALFUZOSIN HCL [Concomitant]
     Indication: URINARY RETENTION
     Route: 048
     Dates: start: 20110618
  5. PREDNISONE [Concomitant]
     Indication: MYELITIS
     Route: 048
  6. CEFTRIAXONE MYLAN [Suspect]
     Route: 042
     Dates: end: 20110630
  7. FORLAX [Concomitant]
     Indication: CONSTIPATION
     Route: 048
  8. MESTINON [Suspect]
     Route: 048
     Dates: start: 20110620, end: 20110704
  9. LOVENOX [Suspect]
     Indication: THROMBOSIS PROPHYLAXIS
     Route: 058
     Dates: start: 20110609, end: 20110704

REACTIONS (3)
  - TOXICITY TO VARIOUS AGENTS [None]
  - URINARY RETENTION [None]
  - AGRANULOCYTOSIS [None]
